FAERS Safety Report 4955688-3 (Version None)
Quarter: 2006Q1

REPORT INFORMATION
  Report Type: 
  Country: None (occurrence: None)
  Receive Date: 20060328
  Receipt Date: 20060315
  Transmission Date: 20060701
  Serious: Yes (Hospitalization)
  Sender: FDA-Public Use
  Company Number: PHMT2006CA00875

PATIENT
  Sex: Female

DRUGS (2)
  1. STARLIX/STARSIS/FASTIC [Suspect]
     Indication: DIABETES MELLITUS
     Dosage: 120 MG, UNK
     Route: 048
     Dates: start: 20000101
  2. GLUCOPHAGE [Concomitant]

REACTIONS (2)
  - DEHYDRATION [None]
  - HYPERSENSITIVITY [None]
